FAERS Safety Report 10938895 (Version 2)
Quarter: 2015Q2

REPORT INFORMATION
  Report Type: Spontaneous
  Country: US (occurrence: US)
  Receive Date: 20150321
  Receipt Date: 20150525
  Transmission Date: 20150821
  Serious: No
  Sender: FDA-Public Use
  Company Number: US-JNJFOC-20130907143

PATIENT
  Age: 79 Year
  Sex: Male

DRUGS (17)
  1. OXYCODONE [Concomitant]
     Active Substance: OXYCODONE
     Dosage: EVERY 4 HOURS AS NEEDED
     Route: 048
  2. GLIMEPIRIDE. [Concomitant]
     Active Substance: GLIMEPIRIDE
     Route: 060
  3. POTASSIUM CHLORIDE. [Concomitant]
     Active Substance: POTASSIUM CHLORIDE
     Route: 065
  4. TOPIRAMATE. [Suspect]
     Active Substance: TOPIRAMATE
     Indication: ALLODYNIA
     Route: 065
  5. INSULIN LISPRO [Concomitant]
     Active Substance: INSULIN LISPRO
     Route: 060
  6. TOPIRAMATE. [Suspect]
     Active Substance: TOPIRAMATE
     Indication: ALLODYNIA
     Route: 065
  7. TOPIRAMATE. [Suspect]
     Active Substance: TOPIRAMATE
     Indication: PARAESTHESIA
     Route: 065
  8. ISOSORBIDE MONONITRATE. [Concomitant]
     Active Substance: ISOSORBIDE MONONITRATE
     Route: 065
  9. ASPIRIN. [Concomitant]
     Active Substance: ASPIRIN
     Route: 060
  10. TOPIRAMATE. [Suspect]
     Active Substance: TOPIRAMATE
     Indication: PARAESTHESIA
     Route: 065
  11. INSULIN GLARGINE [Concomitant]
     Active Substance: INSULIN GLARGINE
     Route: 060
  12. TOPIRAMATE. [Suspect]
     Active Substance: TOPIRAMATE
     Indication: PARAESTHESIA
     Route: 065
  13. METOPROLOL SUCCINATE. [Concomitant]
     Active Substance: METOPROLOL SUCCINATE
     Dosage: EVERY 4 HOURS AS NEEDED
     Route: 065
  14. FUROSEMIDE. [Concomitant]
     Active Substance: FUROSEMIDE
     Dosage: EVERY 4 HOURS AS NEEDED
     Route: 065
  15. NITROGLYCERIN. [Concomitant]
     Active Substance: NITROGLYCERIN
     Route: 060
  16. ALLOPURINOL. [Concomitant]
     Active Substance: ALLOPURINOL
     Route: 060
  17. TOPIRAMATE. [Suspect]
     Active Substance: TOPIRAMATE
     Indication: ALLODYNIA
     Route: 065

REACTIONS (1)
  - Product use issue [Unknown]
